FAERS Safety Report 21157097 (Version 1)
Quarter: 2022Q3

REPORT INFORMATION
  Report Type: Spontaneous
  Country: US (occurrence: None)
  Receive Date: 20220730
  Receipt Date: 20220730
  Transmission Date: 20221027
  Serious: Yes (Other)
  Sender: FDA-Public Use
  Company Number: None

PATIENT
  Age: 66 Year
  Sex: Female
  Weight: 81 kg

DRUGS (4)
  1. REPATHA [Suspect]
     Active Substance: EVOLOCUMAB
     Dosage: FREQUENCY : EVERY OTHER WEEK;?OTHER ROUTE : INJECTION IN STOMACH AND UPPER ARM;?
     Route: 050
     Dates: start: 20220715, end: 20220729
  2. LOSARTAN [Concomitant]
     Active Substance: LOSARTAN
  3. HYDROCHLOROTHIAZIDE [Concomitant]
     Active Substance: HYDROCHLOROTHIAZIDE
  4. VITAMINS [Concomitant]
     Active Substance: VITAMINS

REACTIONS (3)
  - Rash erythematous [None]
  - Hypoaesthesia [None]
  - Pruritus [None]

NARRATIVE: CASE EVENT DATE: 20220729
